FAERS Safety Report 23190095 (Version 2)
Quarter: 2024Q2

REPORT INFORMATION
  Report Type: Spontaneous
  Country: IT (occurrence: IT)
  Receive Date: 20231116
  Receipt Date: 20240503
  Transmission Date: 20240715
  Serious: Yes (Other)
  Sender: FDA-Public Use
  Company Number: None

PATIENT
  Age: 69 Year
  Sex: Female
  Weight: 50 kg

DRUGS (10)
  1. CISPLATIN [Suspect]
     Active Substance: CISPLATIN
     Indication: Metastases to lung
     Dosage: DOSAGE TEXT: 3RD CYCLE/ 8TH DAY WITH CISPLATIN TEVA* 50MG 100ML ADMINISTERED AT A DOSAGE OF 25 MG...
     Route: 042
     Dates: start: 20230801, end: 20231002
  2. IMFINZI [Concomitant]
     Active Substance: DURVALUMAB
     Indication: Malignant neoplasm of ampulla of Vater
     Dosage: DOSAGE TEXT: IMFINZI*1FL 10ML 50MG/ML - DURVALUMAB (PA); ATC: L01FF03; DOSAGE SCHEDULE: 1500 MG I...
     Route: 042
     Dates: start: 20230801, end: 20231016
  3. DEXAMETHASONE [Concomitant]
     Active Substance: DEXAMETHASONE
     Indication: Steroid therapy
     Dosage: DOSAGE TEXT: DEXAMETASONE (PA) ADMINISTERED 8 MG IV PER CDDP+GEMCITABINE+DURVALUMAB PROTOCOL (SCH...
     Route: 042
     Dates: start: 20230801, end: 20231016
  4. METOCLOPRAMIDE [Concomitant]
     Active Substance: METOCLOPRAMIDE
     Indication: Nausea
     Dosage: DOSAGE TEXT: METHOCLOPRAMIDE (PA) ADMINISTERED 10 MG IV PER CDDP+GEMCITABINE+DURVALUMAB PROTOCOL ...
     Route: 042
     Dates: start: 20230801, end: 20231016
  5. RIOPAN [Concomitant]
     Indication: Gastrooesophageal reflux disease
     Dosage: DOSAGE TEXT: RIOPAN*OS SUSP 40BS 80MG/ML10ML- 2 BS/DAY
     Dates: start: 2023
  6. GEMCITABINE HYDROCHLORIDE [Suspect]
     Active Substance: GEMCITABINE HYDROCHLORIDE
     Indication: Metastases to lung
     Dosage: DOSAGE TEXT: 3RD CYCLE/ 8TH DAY WITH GEMCITABINA HIKMA* 5FL 1G ADMINISTERED AT A DOSAGE OF 1000 M...
     Route: 042
     Dates: start: 20230801, end: 20231002
  7. GLUTATIONE [Concomitant]
     Indication: Chemotherapy side effect prophylaxis
     Dosage: DOSAGE TEXT: GLUTATHIONE (PA) ADMINISTERED 2.5 MG IV PER CDDP+GEMCITABINE+DURVALUMAB PROTOCOL (SC...
     Route: 042
     Dates: start: 20230801, end: 20231016
  8. CREON [Concomitant]
     Active Substance: PANCRELIPASE AMYLASE\PANCRELIPASE LIPASE\PANCRELIPASE PROTEASE
     Indication: Pancreatic failure
     Dosage: CREON 10000UI*100CPS 150MG RM - 2 CPS/DAY
     Route: 048
     Dates: start: 2023
  9. OMEPRAZOLE [Concomitant]
     Active Substance: OMEPRAZOLE
     Indication: Gastrooesophageal reflux disease
     Dosage: DOSAGE TEXT: OMEPRAZEN*28CPS 20MG: OMEPRAZOLE - 1 CPS/DAY
     Route: 065
     Dates: start: 2023
  10. MICARDIS [Concomitant]
     Active Substance: TELMISARTAN
     Indication: Hypertension
     Dosage: DOSAGE TEXT: MICARDIS*28CPR 20MG - 1 TABLET / DAY
     Route: 065
     Dates: start: 2023

REACTIONS (6)
  - Hypotensive crisis [Recovered/Resolved]
  - Oral herpes [Recovered/Resolved]
  - Dyspnoea [Recovered/Resolved]
  - Chest pain [Recovered/Resolved]
  - Suffocation feeling [Recovered/Resolved]
  - Fatigue [Recovered/Resolved]

NARRATIVE: CASE EVENT DATE: 20231009
